FAERS Safety Report 12216580 (Version 1)
Quarter: 2016Q1

REPORT INFORMATION
  Report Type: Spontaneous
  Country: GR (occurrence: GR)
  Receive Date: 20160329
  Receipt Date: 20160329
  Transmission Date: 20160526
  Serious: Yes (Other)
  Sender: FDA-Public Use
  Company Number: GR-009507513-1603GRC010731

PATIENT

DRUGS (2)
  1. PEGINTRON [Suspect]
     Active Substance: PEGINTERFERON ALFA-2B
     Indication: CHRONIC HEPATITIS C
     Dosage: ONCE WEEKLY FOR A PERIOD OF 48 WEEKS
  2. INTRON A [Suspect]
     Active Substance: INTERFERON ALFA-2B
     Indication: CHRONIC HEPATITIS C
     Dosage: 3 MU/M2, THREE TIMES WEEKLY

REACTIONS (7)
  - Transfusion [Unknown]
  - Weight decreased [Unknown]
  - Adverse event [Unknown]
  - Neutropenia [Unknown]
  - No therapeutic response [Unknown]
  - Cholangiocarcinoma [Unknown]
  - Hepatic cirrhosis [Unknown]
